FAERS Safety Report 6336913-3 (Version None)
Quarter: 2009Q3

REPORT INFORMATION
  Report Type: 
  Country: None (occurrence: None)
  Receive Date: 20090901
  Receipt Date: 20090828
  Transmission Date: 20100115
  Serious: Yes (Death)
  Sender: FDA-Public Use
  Company Number: PHHY2009BR36866

PATIENT
  Sex: Male

DRUGS (7)
  1. DIOVAN [Suspect]
     Indication: MYOCARDIAL INFARCTION
     Dosage: 160 MG, QD
     Route: 048
     Dates: start: 20090101
  2. SELOZOK [Concomitant]
  3. PLAVIX [Concomitant]
  4. ALPRAZ [Concomitant]
     Indication: NERVOUSNESS
  5. MONOCORDIL [Concomitant]
  6. AAS [Concomitant]
  7. SIMVASTATIN [Concomitant]

REACTIONS (1)
  - MYOCARDIAL INFARCTION [None]
